FAERS Safety Report 11769119 (Version 1)
Quarter: 2015Q4

REPORT INFORMATION
  Report Type: Spontaneous
  Country: US (occurrence: US)
  Receive Date: 20151123
  Receipt Date: 20151123
  Transmission Date: 20160304
  Serious: No
  Sender: FDA-Public Use
  Company Number: US-BAYER-2015-473775

PATIENT
  Age: 63 Year
  Sex: Female
  Weight: 141.95 kg

DRUGS (20)
  1. KRILL OIL [Concomitant]
     Active Substance: DIETARY SUPPLEMENT
  2. HYDROCHLOROTHIAZIDE. [Concomitant]
     Active Substance: HYDROCHLOROTHIAZIDE
  3. BENEFIBER [Concomitant]
     Active Substance: STARCH, WHEAT
  4. ACETAMINOPHEN. [Concomitant]
     Active Substance: ACETAMINOPHEN
  5. CALCIUM [Concomitant]
     Active Substance: CALCIUM
  6. PRIMATENE [EPINEPHRINE BITARTRATE] [Concomitant]
  7. SERTRALINE [Concomitant]
     Active Substance: SERTRALINE HYDROCHLORIDE
  8. HYDROCODONE [Concomitant]
     Active Substance: HYDROCODONE
  9. LEVOTHYROXINE. [Concomitant]
     Active Substance: LEVOTHYROXINE
  10. MONTELUKAST [Concomitant]
     Active Substance: MONTELUKAST SODIUM
  11. VERAPAMIL [Concomitant]
     Active Substance: VERAPAMIL HYDROCHLORIDE
  12. MIRALAX [Suspect]
     Active Substance: POLYETHYLENE GLYCOL 3350
     Indication: HAEMORRHOID OPERATION
     Dosage: 1 DF, QD
     Route: 048
     Dates: start: 201511
  13. POLYETHYLENE GLYCOL [Concomitant]
     Active Substance: POLYETHYLENE GLYCOLS
  14. BABY ASPIRIN [Concomitant]
     Active Substance: ASPIRIN
  15. BIOTIN [Concomitant]
     Active Substance: BIOTIN
  16. TRIAMTERENE. [Concomitant]
     Active Substance: TRIAMTERENE
  17. CLONAZEPAM. [Concomitant]
     Active Substance: CLONAZEPAM
  18. ENALAPRIL [Concomitant]
     Active Substance: ENALAPRIL
  19. METFORMIN [Concomitant]
     Active Substance: METFORMIN HYDROCHLORIDE
  20. MINERAL OIL EMULSION [Concomitant]
     Active Substance: MINERAL OIL EMULSION

REACTIONS (2)
  - Product use issue [None]
  - Product use issue [None]

NARRATIVE: CASE EVENT DATE: 201511
